FAERS Safety Report 7082485-8 (Version None)
Quarter: 2010Q3

REPORT INFORMATION
  Report Type: 
  Country: None (occurrence: None)
  Receive Date: 20100929
  Receipt Date: 20100618
  Transmission Date: 20110219
  Serious: No
  Sender: FDA-Public Use
  Company Number: US-WYE-H15792110

PATIENT
  Age: 16 Year
  Sex: Female

DRUGS (2)
  1. PRISTIQ [Suspect]
  2. WELLBUTRIN [Suspect]

REACTIONS (1)
  - DRUG SCREEN FALSE POSITIVE [None]
